FAERS Safety Report 18264118 (Version 2)
Quarter: 2020Q4

REPORT INFORMATION
  Report Type: Spontaneous
  Country: US (occurrence: US)
  Receive Date: 20200914
  Receipt Date: 20201012
  Transmission Date: 20210113
  Serious: Yes (Hospitalization, Other)
  Sender: FDA-Public Use
  Company Number: US-TEVA-2020-US-1828062

PATIENT
  Age: 52 Year
  Sex: Female
  Weight: 86.2 kg

DRUGS (12)
  1. TYVASO [Suspect]
     Active Substance: TREPROSTINIL
     Route: 055
  2. TYVASO [Suspect]
     Active Substance: TREPROSTINIL
     Dosage: 54 UG, QID, INHALATION
     Route: 055
  3. NYSTATIN. [Suspect]
     Active Substance: NYSTATIN
     Indication: ORAL CANDIDIASIS
     Route: 048
  4. METRONIDAZOLE. [Suspect]
     Active Substance: METRONIDAZOLE
     Indication: PULMONARY ARTERIAL HYPERTENSION
     Route: 065
  5. AMOXICILLIN. [Suspect]
     Active Substance: AMOXICILLIN
     Indication: PRODUCT USED FOR UNKNOWN INDICATION
     Dosage: ONE DOSE
     Route: 065
     Dates: start: 202008
  6. TYVASO [Suspect]
     Active Substance: TREPROSTINIL
     Route: 055
  7. TYVASO [Suspect]
     Active Substance: TREPROSTINIL
     Dosage: 18-54 UG (3-9 BREATHS) FOUR TIMES A DAY (QID)
     Route: 055
  8. LETAIRIS [Suspect]
     Active Substance: AMBRISENTAN
     Indication: PRODUCT USED FOR UNKNOWN INDICATION
     Route: 065
  9. TYVASO [Suspect]
     Active Substance: TREPROSTINIL
     Indication: PULMONARY ARTERIAL HYPERTENSION
     Route: 055
     Dates: start: 20110920
  10. REVATIO [Suspect]
     Active Substance: SILDENAFIL CITRATE
     Indication: PRODUCT USED FOR UNKNOWN INDICATION
     Route: 065
  11. TYVASO [Suspect]
     Active Substance: TREPROSTINIL
     Dosage: 72 MICROGRAM DAILY; 18 UG, UNK, INHALATION
     Route: 065
  12. DIFLUCAN [Suspect]
     Active Substance: FLUCONAZOLE
     Indication: CANDIDA INFECTION
     Route: 065

REACTIONS (31)
  - Facial pain [Unknown]
  - Oropharyngeal pain [Unknown]
  - Drug hypersensitivity [Unknown]
  - Eye pain [Unknown]
  - Pharyngitis streptococcal [Unknown]
  - Salivary hypersecretion [Unknown]
  - Fungal infection [Unknown]
  - Neck pain [Unknown]
  - Paranasal sinus discomfort [Unknown]
  - Toothache [Unknown]
  - Gingival pain [Unknown]
  - Pharyngeal swelling [Unknown]
  - Gastrooesophageal reflux disease [Unknown]
  - Bronchospasm [Unknown]
  - Throat tightness [Unknown]
  - Rhinorrhoea [Unknown]
  - Abscess [Unknown]
  - Blood pressure increased [Unknown]
  - Paranasal sinus hypersecretion [Unknown]
  - Nasal congestion [Unknown]
  - Secretion discharge [Unknown]
  - Malaise [Unknown]
  - Eye swelling [Unknown]
  - Tooth infection [Unknown]
  - Tonsillar hypertrophy [Unknown]
  - Respiratory tract congestion [Unknown]
  - Headache [Unknown]
  - Feeling hot [Unknown]
  - Chest discomfort [Unknown]
  - Throat irritation [Unknown]
  - Oral candidiasis [Unknown]

NARRATIVE: CASE EVENT DATE: 20200719
